FAERS Safety Report 5569621-7 (Version None)
Quarter: 2007Q4

REPORT INFORMATION
  Report Type: 
  Country: None (occurrence: None)
  Receive Date: 20071218
  Receipt Date: 20071203
  Transmission Date: 20080405
  Serious: Yes (Death, Hospitalization)
  Sender: FDA-Public Use
  Company Number: 164282ISR

PATIENT
  Age: 76 Year
  Sex: Male

DRUGS (9)
  1. DIPYRIDAMOLE [Suspect]
     Dosage: 200 MG (200 MG, 200 MG, 1 IN 1 D) ORAL
     Route: 048
     Dates: start: 20020501
  2. ACETYLSALICYLIC ACID SRT [Suspect]
     Dosage: 38 MG (38 MG, 1 IN 1 D) ORAL
     Route: 048
     Dates: start: 20020501, end: 20060401
  3. ACETYLSALICYLIC ACID SRT [Suspect]
     Dosage: 38 MG (38 MG, 1 IN 1 D) ORAL
     Route: 048
     Dates: start: 20060701
  4. COLCHICINE [Suspect]
     Indication: GOUT
     Dosage: 1 MG (0.5 MG, 2 IN 1 D) ORAL
  5. PHENPROCOUMON [Suspect]
     Dosage: 10 MG (10 MG, 1 IN 1 D)
     Dates: start: 20060101
  6. AMLODIPINE [Concomitant]
  7. METOPROLOL [Concomitant]
  8. LISINOPRIL [Concomitant]
  9. CALCIUM CARBONATE [Concomitant]

REACTIONS (9)
  - CEREBRAL HAEMORRHAGE [None]
  - GOUT [None]
  - INTERNATIONAL NORMALISED RATIO INCREASED [None]
  - ISCHAEMIC STROKE [None]
  - MALAISE [None]
  - NAUSEA [None]
  - NEUROLOGICAL SYMPTOM [None]
  - PNEUMONIA [None]
  - VOMITING [None]
